FAERS Safety Report 5119657-5 (Version None)
Quarter: 2006Q3

REPORT INFORMATION
  Report Type: 
  Country: None (occurrence: None)
  Receive Date: 20060928
  Receipt Date: 20060915
  Transmission Date: 20061208
  Serious: Yes (Hospitalization, Other)
  Sender: FDA-Public Use
  Company Number: 2006112931

PATIENT

DRUGS (1)
  1. LYRICA [Suspect]
     Dosage: 150 MG (1 D)

REACTIONS (2)
  - MYOCARDIAL INFARCTION [None]
  - OEDEMA [None]
